FAERS Safety Report 4836040-8 (Version None)
Quarter: 2005Q4

REPORT INFORMATION
  Report Type: 
  Country: None (occurrence: None)
  Receive Date: 20051123
  Receipt Date: 20051116
  Transmission Date: 20060501
  Serious: Yes (Other)
  Sender: FDA-Public Use
  Company Number: DE-MERCK-0511USA03295

PATIENT
  Sex: Female
  Weight: 2 kg

DRUGS (3)
  1. HYDROCHLOROTHIAZIDE [Suspect]
     Indication: HYPERTENSION
  2. EBRANTIL [Suspect]
  3. CANDESARTAN [Suspect]

REACTIONS (11)
  - CRANIAL SUTURES WIDENING [None]
  - DYSPLASIA [None]
  - HYPOTONIA [None]
  - INTUBATION [None]
  - MUSCLE CONTRACTURE [None]
  - NEONATAL ASPHYXIA [None]
  - PATENT DUCTUS ARTERIOSUS [None]
  - PREMATURE BABY [None]
  - PREMATURE RUPTURE OF MEMBRANES [None]
  - RENAL IMPAIRMENT [None]
  - SMALL FOR DATES BABY [None]
